FAERS Safety Report 24094573 (Version 2)
Quarter: 2024Q3

REPORT INFORMATION
  Report Type: Spontaneous
  Country: TW (occurrence: TW)
  Receive Date: 20240716
  Receipt Date: 20240727
  Transmission Date: 20241017
  Serious: Yes (Death)
  Sender: ROCHE
  Company Number: TW-CHUGAI-2024023356AA

PATIENT
  Age: 62 Year
  Sex: Male
  Weight: 51.5 kg

DRUGS (5)
  1. ACTEMRA [Suspect]
     Active Substance: TOCILIZUMAB
     Indication: Rheumatoid arthritis
     Dosage: 440 MILLIGRAM, ONCE/MONTH
     Route: 042
     Dates: start: 20230829, end: 20240514
  2. PREDNISOLONE [Concomitant]
     Active Substance: PREDNISOLONE
     Indication: Rheumatoid arthritis
     Dosage: 2.5 UNK, QD
     Route: 050
     Dates: start: 20240319
  3. METHOTREXATE [Concomitant]
     Active Substance: METHOTREXATE
     Indication: Rheumatoid arthritis
     Dosage: 10 MILLIGRAM, ONCE/WEEK
     Route: 050
     Dates: start: 20230829
  4. ETORICOXIB [Concomitant]
     Active Substance: ETORICOXIB
     Indication: Rheumatoid arthritis
     Dosage: 60 MILLIGRAM, QD
     Route: 050
     Dates: start: 20240417
  5. ALLOPURINOL [Concomitant]
     Active Substance: ALLOPURINOL
     Indication: Prophylaxis
     Dosage: 200 MILLIGRAM, QD
     Route: 050
     Dates: start: 20110808

REACTIONS (2)
  - Fall [Fatal]
  - Craniocerebral injury [Fatal]

NARRATIVE: CASE EVENT DATE: 20240603
